FAERS Safety Report 18517736 (Version 1)
Quarter: 2020Q4

REPORT INFORMATION
  Report Type: Spontaneous
  Country: US (occurrence: US)
  Receive Date: 20201118
  Receipt Date: 20201118
  Transmission Date: 20210114
  Serious: Yes (Other)
  Sender: FDA-Public Use
  Company Number: US-PFIZER INC-2020451250

PATIENT
  Age: 64 Year

DRUGS (1)
  1. RELPAX [Suspect]
     Active Substance: ELETRIPTAN HYDROBROMIDE
     Dosage: UNK

REACTIONS (6)
  - Blindness unilateral [Unknown]
  - Fall [Unknown]
  - Multiple sclerosis [Unknown]
  - Foot fracture [Unknown]
  - Joint dislocation [Unknown]
  - Nephrolithiasis [Unknown]
